FAERS Safety Report 8277440-6 (Version None)
Quarter: 2012Q2

REPORT INFORMATION
  Report Type: 
  Country: None (occurrence: None)
  Receive Date: 20120412
  Receipt Date: 20120412
  Transmission Date: 20120825
  Serious: Yes (Death)
  Sender: FDA-Public Use
  Company Number: ES-AMGEN-ESPSP2012006981

PATIENT
  Age: 45 Year
  Sex: Male
  Weight: 64 kg

DRUGS (6)
  1. ACITRETIN [Suspect]
     Dosage: UNK
     Dates: start: 20060313, end: 20060605
  2. ENBREL [Suspect]
     Indication: PSORIASIS
     Dosage: UNK
     Route: 058
     Dates: start: 20050411, end: 20060619
  3. ACITRETIN [Suspect]
     Dosage: UNK
     Dates: start: 20060313, end: 20060605
  4. EFALIZUMAB [Suspect]
     Indication: PSORIASIS
     Dosage: UNK
     Dates: start: 20061002, end: 20070122
  5. INFLIXIMAB [Suspect]
     Indication: PSORIASIS
     Dosage: UNK
     Dates: start: 20070122, end: 20100216
  6. CYCLOSPORINE [Suspect]
     Dosage: UNK
     Dates: start: 20060728, end: 20061002

REACTIONS (3)
  - DRUG INEFFECTIVE [None]
  - PSORIASIS [None]
  - COMPLETED SUICIDE [None]
